FAERS Safety Report 25455217 (Version 1)
Quarter: 2025Q2

REPORT INFORMATION
  Report Type: Spontaneous
  Country: DE (occurrence: DE)
  Receive Date: 20250619
  Receipt Date: 20250619
  Transmission Date: 20250717
  Serious: Yes (Hospitalization)
  Sender: CHEPLAPHARM
  Company Number: None

PATIENT
  Age: 66 Year
  Sex: Female

DRUGS (11)
  1. OLANZAPINE [Suspect]
     Active Substance: OLANZAPINE
     Dosage: DAILY DOSE: 10 MILLIGRAM
     Route: 048
     Dates: start: 20231223, end: 20231226
  2. OLANZAPINE [Suspect]
     Active Substance: OLANZAPINE
     Dosage: DAILY DOSE: 15 MILLIGRAM
     Route: 048
     Dates: start: 20231227, end: 20240123
  3. OLANZAPINE [Suspect]
     Active Substance: OLANZAPINE
     Dosage: DAILY DOSE: 20 MILLIGRAM
     Route: 048
     Dates: start: 20240124, end: 20240209
  4. OLANZAPINE [Suspect]
     Active Substance: OLANZAPINE
     Dosage: DAILY DOSE: 15 MILLIGRAM
     Route: 048
     Dates: start: 20240210
  5. OLANZAPINE [Suspect]
     Active Substance: OLANZAPINE
     Dosage: FOR A LONG TIME?DAILY DOSE: 5 MILLIGRAM
     Route: 048
     Dates: end: 20231222
  6. QUETIAPINE [Suspect]
     Active Substance: QUETIAPINE
     Dosage: DAILY DOSE: 100 MILLIGRAM
     Route: 048
     Dates: start: 20231222, end: 20231226
  7. QUETIAPINE [Suspect]
     Active Substance: QUETIAPINE
     Dosage: DAILY DOSE: 50 MILLIGRAM
     Route: 048
     Dates: start: 20231227
  8. QUETIAPINE [Suspect]
     Active Substance: QUETIAPINE
     Dosage: FOR A LONG TIME?DAILY DOSE: 150 MILLIGRAM
     Route: 048
     Dates: end: 20231221
  9. FLUOXETINE [Concomitant]
     Active Substance: FLUOXETINE HYDROCHLORIDE
     Dosage: DAILY DOSE: 10 MILLIGRAM
     Route: 048
     Dates: start: 20240104, end: 20240110
  10. FLUOXETINE [Concomitant]
     Active Substance: FLUOXETINE HYDROCHLORIDE
     Dosage: DAILY DOSE: 20 MILLIGRAM
     Route: 048
     Dates: start: 20240111
  11. AMLODIPINE [Concomitant]
     Active Substance: AMLODIPINE BESYLATE
     Dosage: FOR A LONG TIME B.A.W.?DAILY DOSE: 10 MILLIGRAM
     Route: 048

REACTIONS (1)
  - Periorbital oedema [Recovered/Resolved]

NARRATIVE: CASE EVENT DATE: 20240205
